FAERS Safety Report 24836877 (Version 3)
Quarter: 2025Q2

REPORT INFORMATION
  Report Type: Report from Study
  Country: US (occurrence: US)
  Receive Date: 20250113
  Receipt Date: 20250516
  Transmission Date: 20250717
  Serious: Yes (Other)
  Sender: NOVARTIS
  Company Number: US-002147023-NVSC2025US003325

PATIENT
  Sex: Male

DRUGS (2)
  1. ENTRESTO [Suspect]
     Active Substance: SACUBITRIL\VALSARTAN
     Indication: Product used for unknown indication
     Dosage: 49 MG, BID
     Route: 048
  2. ENTRESTO [Suspect]
     Active Substance: SACUBITRIL\VALSARTAN
     Route: 065

REACTIONS (7)
  - Syncope [Unknown]
  - Diabetic eye disease [Unknown]
  - Cardiac disorder [Unknown]
  - Joint dislocation [Unknown]
  - Hypertension [Unknown]
  - Blood pressure fluctuation [Unknown]
  - Heart valve incompetence [Unknown]
